APPROVED DRUG PRODUCT: MANNITOL 25%
Active Ingredient: MANNITOL
Strength: 12.5GM/50ML
Dosage Form/Route: INJECTABLE;INJECTION
Application: A089239 | Product #001
Applicant: IGI LABORATORIES INC
Approved: May 6, 1987 | RLD: No | RS: No | Type: DISCN